FAERS Safety Report 20257981 (Version 1)
Quarter: 2021Q4

REPORT INFORMATION
  Report Type: Spontaneous
  Country: US (occurrence: None)
  Receive Date: 20211229
  Receipt Date: 20211229
  Transmission Date: 20220303
  Serious: Yes (Other)
  Sender: FDA-Public Use
  Company Number: None

PATIENT
  Sex: Male

DRUGS (1)
  1. SIMVASTATIN [Suspect]
     Active Substance: SIMVASTATIN

REACTIONS (3)
  - Headache [None]
  - Rash [None]
  - Burning sensation [None]
